FAERS Safety Report 11124547 (Version 2)
Quarter: 2015Q3

REPORT INFORMATION
  Report Type: Spontaneous
  Country: JP (occurrence: JP)
  Receive Date: 20150520
  Receipt Date: 20150824
  Transmission Date: 20151125
  Serious: Yes (Hospitalization)
  Sender: FDA-Public Use
  Company Number: JP-BAYER-2015-243971

PATIENT
  Age: 78 Year
  Sex: Male
  Weight: 47.9 kg

DRUGS (9)
  1. DILTIAZEM HYDROCHLORIDE. [Suspect]
     Active Substance: DILTIAZEM HYDROCHLORIDE
     Indication: ANGINA PECTORIS
     Dosage: 100 MG, BID
     Route: 048
     Dates: end: 20150224
  2. FAMOTIDINE. [Suspect]
     Active Substance: FAMOTIDINE
     Dosage: 20 MG, BID
     Route: 048
     Dates: end: 20150220
  3. NEXIUM [Concomitant]
     Active Substance: ESOMEPRAZOLE MAGNESIUM
     Indication: PROPHYLAXIS
     Dosage: 20 MG, OM
     Route: 048
     Dates: start: 20150220
  4. BONALON [Concomitant]
     Active Substance: ALENDRONATE SODIUM
     Indication: STEROID THERAPY
     Dosage: 35 MG, OW
     Route: 048
     Dates: start: 20150220
  5. BAYASPIRIN [Suspect]
     Active Substance: ASPIRIN
     Indication: ANGINA PECTORIS
     Dosage: 100 MG, QD
     Route: 048
     Dates: start: 20150220
  6. BAKTAR [Concomitant]
     Active Substance: SULFAMETHOXAZOLE\TRIMETHOPRIM
     Indication: PROPHYLAXIS
     Dosage: 1 DF, OM
     Route: 048
     Dates: start: 20150220
  7. PLAVIX [Suspect]
     Active Substance: CLOPIDOGREL BISULFATE
     Indication: ANGINA PECTORIS
     Dosage: 75 MG, OM
     Route: 048
     Dates: end: 20150220
  8. ATORVASTATIN [Suspect]
     Active Substance: ATORVASTATIN
     Dosage: 10 MG, QD
     Route: 048
     Dates: end: 20150220
  9. LEXIN [Suspect]
     Active Substance: CEPHALEXIN
     Indication: TRIGEMINAL NEURALGIA
     Dosage: 100 MG, BID
     Route: 048
     Dates: end: 20150220

REACTIONS (1)
  - Interstitial lung disease [Recovered/Resolved]

NARRATIVE: CASE EVENT DATE: 20150201
